FAERS Safety Report 11200109 (Version 2)
Quarter: 2016Q2

REPORT INFORMATION
  Report Type: Not Available
  Country: DK (occurrence: DK)
  Receive Date: 20150618
  Receipt Date: 20160620
  Transmission Date: 20160815
  Serious: Yes (Other)
  Sender: FDA-Public Use
  Company Number: DK-MUNDIPHARMA DS AND PHARMACOVIGILANCE-GBR-2015-0028870

PATIENT
  Age: 73 Year
  Sex: Female
  Weight: 82 kg

DRUGS (5)
  1. AURORIX [Interacting]
     Active Substance: MOCLOBEMIDE
     Indication: DEPRESSION
     Dosage: 150 MG, TID
     Route: 048
     Dates: start: 2010, end: 201503
  2. CONTALGIN UNO DEPOTKAPSLER [Suspect]
     Active Substance: MORPHINE SULFATE
     Indication: PAIN
     Dosage: 20 MG, BID (STRENGTH: 10 AND 5 MG)
     Route: 048
     Dates: start: 20150303, end: 20150323
  3. SIMVASTATIN. [Concomitant]
     Active Substance: SIMVASTATIN
     Indication: HYPERCHOLESTEROLAEMIA
     Dosage: UNK
  4. OXYCODONE HYDROCHLORIDE. [Interacting]
     Active Substance: OXYCODONE HYDROCHLORIDE
     Indication: PAIN
     Dosage: START DOSE WAS 5-10 MG X 6
     Route: 048
     Dates: start: 20150303, end: 20150403
  5. PARACETAMOL [Concomitant]
     Active Substance: ACETAMINOPHEN
     Indication: PAIN
     Dosage: UNK

REACTIONS (16)
  - Nightmare [Recovered/Resolved]
  - Hyperhidrosis [Recovered/Resolved]
  - Heart rate irregular [Recovered/Resolved]
  - Hypertension [Recovered/Resolved]
  - Abdominal pain upper [Recovered/Resolved]
  - Feeling cold [Recovered/Resolved]
  - Headache [Recovered/Resolved]
  - Restlessness [Recovered/Resolved]
  - Anxiety [Recovered/Resolved]
  - Heart rate increased [Recovered/Resolved]
  - Drug interaction [Recovered/Resolved]
  - Serotonin syndrome [Recovered/Resolved]
  - Extrasystoles [Recovered/Resolved]
  - Dizziness [Recovered/Resolved]
  - Sedation [Recovered/Resolved]
  - Nausea [Recovered/Resolved]

NARRATIVE: CASE EVENT DATE: 20150303
